FAERS Safety Report 14104508 (Version 3)
Quarter: 2018Q1

REPORT INFORMATION
  Report Type: Report from Study
  Country: FI (occurrence: FI)
  Receive Date: 20171018
  Receipt Date: 20180117
  Transmission Date: 20180508
  Serious: Yes (Hospitalization)
  Sender: FDA-Public Use
  Company Number: FI-ASTRAZENECA-2017SF05980

PATIENT
  Age: 54 Year
  Sex: Female
  Weight: 74.7 kg

DRUGS (14)
  1. FULVESTRANT. [Suspect]
     Active Substance: FULVESTRANT
     Indication: INVASIVE DUCTAL BREAST CARCINOMA
     Dosage: DAYS 1 AND 15 OF CYCLE 1, THEN ON DAY 1 OF CYCLE 2 AND BEYOND
     Route: 030
     Dates: start: 20171012
  2. LACTULOSE. [Concomitant]
     Active Substance: LACTULOSE
     Dates: start: 20150512
  3. ABEMACICLIB [Suspect]
     Active Substance: ABEMACICLIB
     Indication: INVASIVE DUCTAL BREAST CARCINOMA
     Route: 048
     Dates: start: 20171012
  4. PLACEBO [Suspect]
     Active Substance: UNSPECIFIED INGREDIENT
     Indication: INVASIVE DUCTAL BREAST CARCINOMA
     Route: 048
     Dates: start: 20171012
  5. XGEVA [Concomitant]
     Active Substance: DENOSUMAB
     Dates: start: 20150528
  6. ABEMACICLIB [Suspect]
     Active Substance: ABEMACICLIB
     Indication: INVASIVE DUCTAL BREAST CARCINOMA
     Route: 048
     Dates: start: 20150610, end: 20171005
  7. ZOLADEX [Concomitant]
     Active Substance: GOSERELIN ACETATE
     Dates: start: 20150513
  8. KESTINE [Concomitant]
     Active Substance: EBASTINE
     Dates: start: 20160405
  9. FULVESTRANT. [Suspect]
     Active Substance: FULVESTRANT
     Indication: INVASIVE DUCTAL BREAST CARCINOMA
     Dosage: DAYS 1 AND 15 OF CYCLE 1, THEN ON DAY 1 OF CYCLE 2 AND BEYOND
     Route: 030
     Dates: start: 20150610, end: 20171005
  10. PLACEBO [Suspect]
     Active Substance: UNSPECIFIED INGREDIENT
     Indication: INVASIVE DUCTAL BREAST CARCINOMA
     Route: 048
     Dates: start: 20150610, end: 20171005
  11. FORXIGA [Concomitant]
     Active Substance: DAPAGLIFLOZIN
     Dates: start: 20160402
  12. KALCIPOS-D [Concomitant]
     Active Substance: CALCIUM CARBONATE\CHOLECALCIFEROL
     Dates: start: 20150512
  13. LOSARTAN POTASSIUM. [Concomitant]
     Active Substance: LOSARTAN POTASSIUM
     Dates: start: 20100608
  14. JANUVIA [Concomitant]
     Active Substance: SITAGLIPTIN PHOSPHATE
     Dates: start: 20160422

REACTIONS (1)
  - Pulmonary embolism [Recovered/Resolved]

NARRATIVE: CASE EVENT DATE: 20171005
